FAERS Safety Report 9363695 (Version 1)
Quarter: 2013Q2

REPORT INFORMATION
  Report Type: Spontaneous
  Country: IT (occurrence: None)
  Receive Date: 20130524
  Receipt Date: 20130524
  Transmission Date: 20140414
  Serious: Yes (Hospitalization)
  Sender: FDA-Public Use
  Company Number: VAL_01152_2012

PATIENT
  Age: 11 Day
  Sex: Male

DRUGS (1)
  1. METHERGINE [Suspect]
     Indication: PRODUCT USED FOR UNKNOWN INDICATION
     Route: 048
     Dates: start: 20111024, end: 20111024

REACTIONS (7)
  - Wrong drug administered [None]
  - Abdominal pain [None]
  - Crying [None]
  - Rhinitis [None]
  - Agitation [None]
  - Respiratory tract infection [None]
  - Respiratory disorder [None]
